FAERS Safety Report 26115744 (Version 1)
Quarter: 2025Q4

REPORT INFORMATION
  Report Type: Spontaneous
  Country: JP (occurrence: JP)
  Receive Date: 20251203
  Receipt Date: 20251203
  Transmission Date: 20260117
  Serious: Yes (Other)
  Sender: ALEXION PHARMACEUTICALS
  Company Number: JP-ASTRAZENECA-202511JPN023836JP

PATIENT
  Age: 63 Year
  Sex: Female

DRUGS (3)
  1. TRUQAP [Suspect]
     Active Substance: CAPIVASERTIB
     Indication: Breast cancer recurrent
     Route: 065
  2. FASLODEX [Suspect]
     Active Substance: FULVESTRANT
     Indication: Breast cancer recurrent
     Route: 065
  3. FASLODEX [Suspect]
     Active Substance: FULVESTRANT

REACTIONS (2)
  - Rash [Unknown]
  - Malignant neoplasm progression [Unknown]
